FAERS Safety Report 7253699-9 (Version None)
Quarter: 2011Q1

REPORT INFORMATION
  Report Type: 
  Country: None (occurrence: None)
  Receive Date: 20110129
  Receipt Date: 20100201
  Transmission Date: 20110831
  Serious: No
  Sender: FDA-Public Use
  Company Number: US-ABBOTT-10P-163-0623350-00

PATIENT
  Sex: Female
  Weight: 54.48 kg

DRUGS (2)
  1. HUMIRA [Suspect]
     Indication: RHEUMATOID ARTHRITIS
     Dates: start: 20100128
  2. HUMIRA [Suspect]
     Indication: PSORIATIC ARTHROPATHY

REACTIONS (5)
  - SINUS HEADACHE [None]
  - UPPER-AIRWAY COUGH SYNDROME [None]
  - HEADACHE [None]
  - SINUS CONGESTION [None]
  - NAUSEA [None]
